FAERS Safety Report 5380667-4 (Version None)
Quarter: 2007Q3

REPORT INFORMATION
  Report Type: 
  Country: None (occurrence: None)
  Receive Date: 20070706
  Receipt Date: 20070629
  Transmission Date: 20080115
  Serious: Yes (Hospitalization)
  Sender: FDA-Public Use
  Company Number: GB-AVENTIS-200711786GDDC

PATIENT
  Sex: Female
  Weight: 110 kg

DRUGS (16)
  1. LANTUS [Suspect]
     Indication: DIABETES MELLITUS
     Route: 058
     Dates: start: 20061101, end: 20070201
  2. OPTICLIK (INSULIN INJECTION PEN) [Suspect]
  3. PREDNISOLONE [Concomitant]
  4. GABAPENTIN [Concomitant]
  5. RABEPRAZOLE SODIUM [Concomitant]
  6. IRBESARTAN [Concomitant]
  7. AMLODIPINE [Concomitant]
  8. BUMETANIDE [Concomitant]
  9. ALENDRONIC ACID [Concomitant]
     Dosage: DOSE QUANTITY: 1
     Route: 048
  10. ASPIRIN [Concomitant]
  11. METFORMIN HCL [Concomitant]
  12. AMITRIPTYLINE HCL [Concomitant]
  13. ATORVASTATIN [Concomitant]
  14. ZOPICLONE [Concomitant]
  15. CO-DYDRAMOL [Concomitant]
     Dosage: DOSE: 10/500
  16. APIDRA [Concomitant]
     Route: 058

REACTIONS (2)
  - PHARMACEUTICAL PRODUCT COMPLAINT [None]
  - TACHYCARDIA [None]
